FAERS Safety Report 12464322 (Version 3)
Quarter: 2016Q2

REPORT INFORMATION
  Report Type: Spontaneous
  Country: ES (occurrence: ES)
  Receive Date: 20160614
  Receipt Date: 20160630
  Transmission Date: 20160815
  Serious: Yes (Other)
  Sender: FDA-Public Use
  Company Number: ES-PFIZER INC-2016289859

PATIENT
  Age: 7 Year
  Sex: Female

DRUGS (4)
  1. GENOTONORM MINIQUICK [Suspect]
     Active Substance: SOMATROPIN
     Dosage: 1.2 MG, DAILY 6 DAYS PER WEEK AND 1 OFF1.2 MG, DAILY
     Route: 058
     Dates: start: 201509
  2. GENOTONORM MINIQUICK [Suspect]
     Active Substance: SOMATROPIN
     Indication: SMALL FOR DATES BABY
     Dosage: 0.6 MG DAILY, 6 DAYS PER WEEK AND 1 OFF
     Route: 058
     Dates: start: 201210, end: 201309
  3. GENOTONORM MINIQUICK [Suspect]
     Active Substance: SOMATROPIN
     Dosage: 0.8 MG DAILY, 6 DAYS PER WEEK AND 1 OFF
     Route: 058
     Dates: start: 201309, end: 201409
  4. GENOTONORM MINIQUICK [Suspect]
     Active Substance: SOMATROPIN
     Dosage: 1 MG, DAILY, 6 DAYS PER WEEK AND 1 OFF
     Route: 058
     Dates: start: 201409, end: 201504

REACTIONS (5)
  - Ligament sprain [Recovered/Resolved]
  - Radius fracture [Recovered/Resolved]
  - Muscle injury [Recovered/Resolved]
  - Fall [Recovered/Resolved]
  - Hand fracture [Recovered/Resolved]

NARRATIVE: CASE EVENT DATE: 201510
